FAERS Safety Report 8128771-1 (Version None)
Quarter: 2012Q1

REPORT INFORMATION
  Report Type: 
  Country: None (occurrence: None)
  Receive Date: 20120210
  Receipt Date: 20120130
  Transmission Date: 20120608
  Serious: Yes (Other)
  Sender: FDA-Public Use
  Company Number: GB-BRISTOL-MYERS SQUIBB COMPANY-16393837

PATIENT
  Age: 69 Year
  Sex: Male

DRUGS (4)
  1. CISPLATIN [Suspect]
     Indication: TESTICULAR GERM CELL CANCER
     Dosage: BEPX1,EPX1,ECX2
  2. ETOPOSIDE [Suspect]
     Indication: TESTICULAR GERM CELL CANCER
     Dosage: BEPX1,EPX1,ECX2
  3. BLEOMYCIN SULFATE [Suspect]
     Indication: TESTICULAR GERM CELL CANCER
     Dosage: NO OF CYCLES 6
  4. CARBOPLATIN [Suspect]
     Indication: TESTICULAR GERM CELL CANCER
     Dosage: BEPX1,EPX1,ECX2

REACTIONS (2)
  - GASTROINTESTINAL HAEMORRHAGE [None]
  - BLOOD CREATININE INCREASED [None]
